FAERS Safety Report 9237211 (Version 1)
Quarter: 2013Q2

REPORT INFORMATION
  Report Type: Spontaneous
  Country: US (occurrence: US)
  Receive Date: 20130417
  Receipt Date: 20130417
  Transmission Date: 20140414
  Serious: No
  Sender: FDA-Public Use
  Company Number: US-ASTRAZENECA-2013SE21303

PATIENT
  Age: 85 Year
  Sex: Female
  Weight: 52.6 kg

DRUGS (5)
  1. NEXIUM [Suspect]
     Indication: GASTROOESOPHAGEAL REFLUX DISEASE
     Route: 048
  2. BENICAR [Concomitant]
  3. JUNIVIA [Concomitant]
  4. LIPITOR [Concomitant]
  5. VICODIN [Concomitant]

REACTIONS (10)
  - Anaemia [Unknown]
  - General physical health deterioration [Unknown]
  - Back pain [Unknown]
  - Diabetes mellitus [Unknown]
  - Blood glucose increased [Unknown]
  - Blood disorder [Unknown]
  - Memory impairment [Unknown]
  - Body height decreased [Unknown]
  - Weight decreased [Unknown]
  - Diarrhoea [Unknown]
